FAERS Safety Report 23302160 (Version 3)
Quarter: 2024Q4

REPORT INFORMATION
  Report Type: Spontaneous
  Country: US (occurrence: US)
  Receive Date: 20231215
  Receipt Date: 20241210
  Transmission Date: 20250115
  Serious: Yes (Hospitalization, Other)
  Sender: PFIZER
  Company Number: US-PFIZER INC-PV202300199538

PATIENT
  Age: 58 Year
  Sex: Female
  Weight: 94.9 kg

DRUGS (20)
  1. IBRANCE [Suspect]
     Active Substance: PALBOCICLIB
     Indication: Breast cancer metastatic
     Dosage: DAILY FOR 21 DAYS FOLLOWED BY 7 DAYS OFF Q. 28 DAYS
     Route: 048
     Dates: start: 20221117, end: 20230222
  2. IBRANCE [Suspect]
     Active Substance: PALBOCICLIB
     Dosage: 125 MG, CYCLIC (DAILY FOR 21 DAYS FOLLOWED BY 7 DAYS OFF Q. 28 DAYS)
     Route: 048
     Dates: start: 20230222, end: 20231122
  3. IBRANCE [Suspect]
     Active Substance: PALBOCICLIB
     Dosage: 125 MG, CYCLIC (21 DAYS EVERY 28 DAYS)
     Route: 048
     Dates: start: 20231122
  4. IBRANCE [Suspect]
     Active Substance: PALBOCICLIB
     Dosage: 125 MG, CYCLIC (FOR 21 DAYS FOLLOWED BY 7 DAYS OFF Q. 28 DAYS)
     Route: 048
  5. NORVASC [Concomitant]
     Active Substance: AMLODIPINE BESYLATE
     Indication: Blood pressure abnormal
     Dosage: 5 MG, DAILY
     Route: 048
     Dates: start: 20220715
  6. ARIMIDEX [Concomitant]
     Active Substance: ANASTROZOLE
     Indication: Breast operation
     Dosage: 1 MG, 1X/DAY
     Route: 048
     Dates: start: 20221117, end: 20231117
  7. ARIMIDEX [Concomitant]
     Active Substance: ANASTROZOLE
     Indication: Chemotherapy
     Dosage: TAKE 1 TABLET (1 MG TOTAL) BY MOUTH IN THE MORNING SWALLOW WHOLE WITH A DRINK OF WATER.- ORAL
     Route: 048
  8. CHOLECALCIFEROL [Concomitant]
     Active Substance: CHOLECALCIFEROL
     Dosage: (1000 UT) CAPSULE
     Route: 048
     Dates: start: 20221027
  9. CYANOCOBALAMIN [Concomitant]
     Active Substance: CYANOCOBALAMIN
     Dosage: TAKE 1 TABLET (1,000 30 TABLET MCG) BY MOUTH IN THE MORNING
     Route: 048
     Dates: start: 20221117, end: 20231117
  10. CYANOCOBALAMIN [Concomitant]
     Active Substance: CYANOCOBALAMIN
     Dosage: TAKE 1 TABLET (1,000 30 TABLET MCG) BY MOUTH IN THE MORNING
     Route: 048
  11. FERROUS SULFATE [Concomitant]
     Active Substance: FERROUS SULFATE
     Dosage: 65 MG, 2X/DAY (BEFORE BREAKFAST AND BEFORE EVENING MEAL. DO NOT CRUSH, CHEW, SPLIT)
     Route: 048
     Dates: start: 20221117, end: 20231117
  12. FOLVITE [Concomitant]
     Active Substance: FOLIC ACID
     Dosage: SIG: TAKE 1000 MCG BY MOUTH IN THE MORNING
     Route: 048
     Dates: start: 20221103
  13. FOLVITE [Concomitant]
     Active Substance: FOLIC ACID
     Dosage: SIG: TAKE 1000 MCG BY MOUTH IN THE MORNING
     Route: 048
  14. NEURONTIN [Concomitant]
     Active Substance: GABAPENTIN
     Indication: Pain
     Dosage: TAKE 1 CAPSULE (300 MG) BY MOUTH IN THE CAPSULE MORNING AND AT BEDTIME.
  15. NEURONTIN [Concomitant]
     Active Substance: GABAPENTIN
     Dosage: 600 MG, DAILY (TAKE UP TO 2 CAPSULES BY MOUTH DAILY)
     Dates: start: 20221014, end: 20221227
  16. ATARAX [Concomitant]
     Active Substance: HYDROXYZINE HYDROCHLORIDE
     Indication: Anxiety
     Dosage: 1 TWICE A DAY FOR 7DAYS AS NEEDED FOR ANXIETY/1 IF NEEDED IN MORNING + AT BEDTIME FOR ITCHING
     Route: 048
  17. ATARAX [Concomitant]
     Active Substance: HYDROXYZINE HYDROCHLORIDE
     Indication: Pruritus
     Dosage: TAKE ONE TABLET BY MOUTH TWICE A DAY FOR 7DAYS AS NEEDED FOR ANXIETY.
     Route: 048
     Dates: start: 20221103, end: 20221206
  18. COZAAR [Concomitant]
     Active Substance: LOSARTAN POTASSIUM
     Indication: Blood pressure abnormal
     Dosage: TAKE ONE TABLET BY MOUTH ONE TIME DAILY FOR BLOOD PRESSURE
     Route: 048
     Dates: start: 20220921, end: 20221227
  19. COZAAR [Concomitant]
     Active Substance: LOSARTAN POTASSIUM
     Dosage: TAKE 1 TABLET (100 MG) BY MOUTH IN THE MORNING
     Route: 048
  20. ULTRAM [Concomitant]
     Active Substance: TRAMADOL HYDROCHLORIDE
     Dosage: TAKE 1 TABLET (50 MG) BY MOUTH EVERY 6 (SIX) HOURS IF NEEDED.
     Route: 048

REACTIONS (37)
  - Haematuria [Recovered/Resolved]
  - Anaemia [Recovering/Resolving]
  - Second primary malignancy [Unknown]
  - Renal cell carcinoma [Unknown]
  - Blood alkaline phosphatase increased [Unknown]
  - Renal mass [Unknown]
  - Thrombocytopenia [Recovering/Resolving]
  - Disease recurrence [Recovering/Resolving]
  - Iron deficiency [Unknown]
  - Vascular pseudoaneurysm [Unknown]
  - Haemorrhage [Recovered/Resolved]
  - Abdominal discomfort [Unknown]
  - Fatigue [Unknown]
  - Dyspnoea [Unknown]
  - Fatigue [Unknown]
  - Serum ferritin increased [Unknown]
  - Hypertension [Unknown]
  - Blood lactate dehydrogenase increased [Recovering/Resolving]
  - Alanine aminotransferase increased [Recovering/Resolving]
  - Blood albumin decreased [Recovering/Resolving]
  - Blood glucose increased [Recovering/Resolving]
  - Haematocrit decreased [Recovering/Resolving]
  - Mean cell volume increased [Not Recovered/Not Resolved]
  - Mean platelet volume increased [Recovering/Resolving]
  - Protein total increased [Recovering/Resolving]
  - Red blood cell count decreased [Not Recovered/Not Resolved]
  - Red cell distribution width increased [Not Recovered/Not Resolved]
  - White blood cell count increased [Recovering/Resolving]
  - Globulins decreased [Not Recovered/Not Resolved]
  - Mean cell haemoglobin increased [Recovering/Resolving]
  - Blood calcium increased [Unknown]
  - Carbohydrate antigen 15-3 increased [Unknown]
  - Carbohydrate antigen 27.29 increased [Unknown]
  - Monocyte count increased [Unknown]
  - Eosinophil count increased [Unknown]
  - Basophil count increased [Unknown]
  - Reticulocyte count increased [Unknown]

NARRATIVE: CASE EVENT DATE: 20220101
